FAERS Safety Report 6589619-X (Version None)
Quarter: 2010Q1

REPORT INFORMATION
  Report Type: 
  Country: None (occurrence: None)
  Receive Date: 20100212
  Receipt Date: 20100127
  Transmission Date: 20100710
  Serious: Yes (Other)
  Sender: FDA-Public Use
  Company Number: A-NJ2010-33348

PATIENT
  Age: 57 Year
  Sex: Female
  Weight: 54.4 kg

DRUGS (8)
  1. TRACLEER [Suspect]
     Indication: PULMONARY ARTERIAL HYPERTENSION
     Dosage: 125 MG, BID, ORAL
     Route: 048
     Dates: start: 20070816
  2. VERELAN [Concomitant]
  3. ADVIL (IBUPROFEN) [Concomitant]
  4. LORTAB [Concomitant]
  5. VALIUM [Concomitant]
  6. SEROQUEL [Concomitant]
  7. POTASSIUM CHLORIDE [Concomitant]
  8. HERBAL PREPARATION [Concomitant]

REACTIONS (3)
  - BLOOD URINE PRESENT [None]
  - HAEMANGIOMA OF LIVER [None]
  - HYDRONEPHROSIS [None]
